FAERS Safety Report 5745232-5 (Version None)
Quarter: 2008Q2

REPORT INFORMATION
  Report Type: 
  Country: None (occurrence: None)
  Receive Date: 20080521
  Receipt Date: 20080519
  Transmission Date: 20081010
  Serious: Yes (Other)
  Sender: FDA-Public Use
  Company Number: B0517286A

PATIENT
  Sex: Male

DRUGS (3)
  1. SERETIDE [Suspect]
     Indication: ASTHMA
     Route: 055
  2. LOSEC I.V. [Concomitant]
     Indication: ILL-DEFINED DISORDER
     Dosage: 20MG PER DAY
  3. XALATAN [Concomitant]
     Indication: GLAUCOMA
     Route: 047

REACTIONS (4)
  - COLD SWEAT [None]
  - DIZZINESS [None]
  - NAUSEA [None]
  - PHARMACEUTICAL PRODUCT COMPLAINT [None]
